FAERS Safety Report 6684030-5 (Version None)
Quarter: 2010Q2

REPORT INFORMATION
  Report Type: 
  Country: None (occurrence: None)
  Receive Date: 20100416
  Receipt Date: 20100402
  Transmission Date: 20101027
  Serious: Yes (Life-Threatening, Hospitalization)
  Sender: FDA-Public Use
  Company Number: SI-TYCO HEALTHCARE/MALLINCKRODT-T201000936

PATIENT
  Age: 4 Year
  Sex: Female

DRUGS (1)
  1. TRAMADOL HCL [Suspect]
     Dosage: UNK

REACTIONS (2)
  - ACCIDENTAL DRUG INTAKE BY CHILD [None]
  - DRUG TOXICITY [None]
